FAERS Safety Report 6736108-5 (Version None)
Quarter: 2010Q2

REPORT INFORMATION
  Report Type: 
  Country: None (occurrence: None)
  Receive Date: 20100521
  Receipt Date: 20100511
  Transmission Date: 20101027
  Serious: Yes (Hospitalization)
  Sender: FDA-Public Use
  Company Number: US-ROCHE-700018

PATIENT
  Sex: Female
  Weight: 105.2 kg

DRUGS (6)
  1. CAPECITABINE [Suspect]
     Indication: BREAST CANCER
     Dosage: DOSAGE REPORTED AS 2000 AM/PM X 14 DAYS, TEMPORARY DISCONTINUED
     Route: 048
     Dates: start: 20100120, end: 20100331
  2. CAPECITABINE [Suspect]
     Route: 048
  3. HERCEPTIN [Concomitant]
     Indication: BREAST CANCER
     Route: 042
     Dates: start: 20100101
  4. CELEBREX [Concomitant]
  5. LANTUS [Concomitant]
  6. CYMBALTA [Concomitant]

REACTIONS (2)
  - ANKLE FRACTURE [None]
  - FALL [None]
